FAERS Safety Report 5708143-7 (Version None)
Quarter: 2008Q2

REPORT INFORMATION
  Report Type: 
  Country: None (occurrence: None)
  Receive Date: 20080417
  Receipt Date: 20080415
  Transmission Date: 20081010
  Serious: Yes (Hospitalization)
  Sender: FDA-Public Use
  Company Number: B0507085A

PATIENT
  Age: 96 Year
  Sex: Female
  Weight: 40 kg

DRUGS (6)
  1. ARIXTRA [Suspect]
     Indication: THROMBOSIS PROPHYLAXIS
     Dosage: 1.5MG PER DAY
     Route: 058
     Dates: start: 20080126, end: 20080204
  2. ASPIRIN [Suspect]
     Indication: DRUG USE FOR UNKNOWN INDICATION
     Dosage: 100MG PER DAY
     Route: 048
     Dates: start: 20080126, end: 20080204
  3. BIO THREE [Concomitant]
     Dosage: 9G PER DAY
     Route: 048
  4. MYSLEE [Concomitant]
     Dosage: 5MG PER DAY
     Route: 048
     Dates: end: 20080209
  5. MAGNESIUM OXIDE [Concomitant]
     Dosage: .5G PER DAY
     Route: 048
  6. NITRODERM [Concomitant]
     Route: 062

REACTIONS (4)
  - BLOOD CREATININE INCREASED [None]
  - BLOOD UREA INCREASED [None]
  - POST PROCEDURAL HAEMATOMA [None]
  - RED BLOOD CELL COUNT DECREASED [None]
